FAERS Safety Report 8501933-7 (Version None)
Quarter: 2012Q3

REPORT INFORMATION
  Report Type: 
  Country: None (occurrence: None)
  Receive Date: 20120711
  Receipt Date: 20120618
  Transmission Date: 20120928
  Serious: Yes (Hospitalization, Other)
  Sender: FDA-Public Use
  Company Number: AT-JNJFOC-20120609815

PATIENT
  Age: 24 Year
  Sex: Male
  Weight: 85 kg

DRUGS (4)
  1. IMMUNOSUPPRESSANT [Concomitant]
     Indication: CROHN'S DISEASE
     Dates: start: 20110101
  2. REMICADE [Suspect]
     Indication: CROHN'S DISEASE
     Route: 042
     Dates: end: 20100101
  3. PENTASA [Concomitant]
     Indication: CROHN'S DISEASE
     Dates: start: 20070123
  4. PANTOPRAZOLE SODIUM [Concomitant]
     Indication: CROHN'S DISEASE
     Dates: start: 20070123

REACTIONS (1)
  - CAMPYLOBACTER GASTROENTERITIS [None]
